FAERS Safety Report 8422611-9 (Version None)
Quarter: 2012Q2

REPORT INFORMATION
  Report Type: 
  Country: None (occurrence: None)
  Receive Date: 20120608
  Receipt Date: 20120606
  Transmission Date: 20120825
  Serious: Yes (Death)
  Sender: FDA-Public Use
  Company Number: FR-ROCHE-1068769

PATIENT
  Sex: Female

DRUGS (2)
  1. CORTICOIDS (UNK INGREDIENTS) [Suspect]
     Indication: ACQUIRED HAEMOPHILIA
     Route: 065
  2. MABTHERA [Suspect]
     Indication: ACQUIRED HAEMOPHILIA
     Route: 042
     Dates: start: 20120201, end: 20120301

REACTIONS (2)
  - ACUTE RESPIRATORY DISTRESS SYNDROME [None]
  - PNEUMOCYSTIS JIROVECI PNEUMONIA [None]
